FAERS Safety Report 9174510 (Version 1)
Quarter: 2013Q1

REPORT INFORMATION
  Report Type: Spontaneous
  Country: US (occurrence: None)
  Receive Date: 20130313
  Receipt Date: 20130313
  Transmission Date: 20140127
  Serious: Yes (Hospitalization, Other)
  Sender: FDA-Public Use
  Company Number: 2012-678

PATIENT
  Age: 44 Year
  Sex: Female
  Weight: 64.4 kg

DRUGS (3)
  1. FAZACLO (CLOZAPINE, USP) ODT (ORAL DISINTEGRATING TABLET) [Suspect]
     Indication: SCHIZOPHRENIA
     Route: 048
     Dates: start: 20121126, end: 20011130
  2. CLOZARIL (CLOZAPINE) [Suspect]
     Route: 048
     Dates: start: 20121105, end: 20121107
  3. CELEXA [Concomitant]

REACTIONS (5)
  - Schizophrenia, paranoid type [None]
  - Aggression [None]
  - Psychotic disorder [None]
  - Agranulocytosis [None]
  - Urinary tract infection [None]
